FAERS Safety Report 22148145 (Version 1)
Quarter: 2023Q1

REPORT INFORMATION
  Report Type: Spontaneous
  Country: US (occurrence: US)
  Receive Date: 20230328
  Receipt Date: 20230328
  Transmission Date: 20230418
  Serious: Yes (Other)
  Sender: FDA-Public Use
  Company Number: US-BAUSCHBL-2023BNL002342

PATIENT
  Sex: Female

DRUGS (1)
  1. SOOTHE NIGHT TIME [Suspect]
     Active Substance: MINERAL OIL\PETROLATUM
     Indication: Dry eye
     Route: 047

REACTIONS (6)
  - Blindness [Unknown]
  - Sensitive skin [Unknown]
  - Instillation site swelling [Unknown]
  - Instillation site irritation [Unknown]
  - Vision blurred [Unknown]
  - Skin burning sensation [Unknown]
